FAERS Safety Report 7017374-8 (Version None)
Quarter: 2010Q3

REPORT INFORMATION
  Report Type: 
  Country: None (occurrence: None)
  Receive Date: 20100928
  Receipt Date: 20100923
  Transmission Date: 20110219
  Serious: Yes (Other)
  Sender: FDA-Public Use
  Company Number: IE-BRISTOL-MYERS SQUIBB COMPANY-15012545

PATIENT
  Sex: Male
  Weight: 3 kg

DRUGS (5)
  1. REYATAZ [Suspect]
     Route: 064
  2. NORVIR [Suspect]
     Route: 064
  3. EPZICOM [Suspect]
     Route: 064
  4. HEROIN [Suspect]
     Route: 064
  5. CITALOPRAM HYDROBROMIDE [Suspect]
     Route: 064

REACTIONS (1)
  - VENTRICULAR SEPTAL DEFECT [None]
